FAERS Safety Report 8963750 (Version 1)
Quarter: 2012Q4

REPORT INFORMATION
  Report Type: 
  Country: US (occurrence: US)
  Receive Date: 20121214
  Receipt Date: 20121214
  Transmission Date: 20130627
  Serious: Yes (Hospitalization)
  Sender: FDA-Public Use
  Company Number: US-BAYER-2012-130458

PATIENT
  Age: 25 Year
  Sex: Female
  Weight: 123.81 kg

DRUGS (2)
  1. YASMIN [Suspect]
  2. HYDROCODONE W/APAP [Concomitant]
     Indication: PAIN

REACTIONS (1)
  - Pulmonary embolism [None]
